FAERS Safety Report 5230398-6 (Version None)
Quarter: 2007Q1

REPORT INFORMATION
  Report Type: 
  Country: None (occurrence: None)
  Receive Date: 20070201
  Receipt Date: 20070118
  Transmission Date: 20070707
  Serious: Yes (Hospitalization)
  Sender: FDA-Public Use
  Company Number: 2007EU000183

PATIENT
  Age: 59 Year
  Sex: Male

DRUGS (4)
  1. PROGRAF [Suspect]
     Indication: LIVER TRANSPLANT
     Dosage: SEE IMAGE, ORAL
     Route: 048
     Dates: end: 20060801
  2. PROGRAF [Suspect]
     Indication: LIVER TRANSPLANT
     Dosage: SEE IMAGE, ORAL
     Route: 048
     Dates: start: 20060801, end: 20060928
  3. PROGRAF [Suspect]
     Indication: LIVER TRANSPLANT
     Dosage: SEE IMAGE, ORAL
     Route: 048
     Dates: start: 20061030, end: 20061103
  4. PROGRAF [Suspect]
     Indication: LIVER TRANSPLANT
     Dosage: SEE IMAGE, ORAL
     Route: 048
     Dates: start: 20061123, end: 20061205

REACTIONS (23)
  - ANASTOMOTIC COMPLICATION [None]
  - ARTERIAL STENT INSERTION [None]
  - CEREBELLAR ATROPHY [None]
  - CEREBELLAR SYNDROME [None]
  - CONFUSIONAL STATE [None]
  - CRYPTOCOCCOSIS [None]
  - CYTOMEGALOVIRUS INFECTION [None]
  - DRUG EFFECT DECREASED [None]
  - ENTEROCOCCAL INFECTION [None]
  - EPSTEIN-BARR VIRUS INFECTION [None]
  - HALLUCINATION [None]
  - HYPONATRAEMIA [None]
  - INCORRECT DOSE ADMINISTERED [None]
  - ISCHAEMIC STROKE [None]
  - KLEBSIELLA INFECTION [None]
  - LEUKOARAIOSIS [None]
  - LIVER DISORDER [None]
  - MENINGITIS VIRAL [None]
  - OVERDOSE [None]
  - PARANEOPLASTIC SYNDROME [None]
  - PNEUMONITIS CRYPTOCOCCAL [None]
  - PULMONARY GRANULOMA [None]
  - SMALL CELL LUNG CANCER STAGE UNSPECIFIED [None]
